FAERS Safety Report 21027305 (Version 6)
Quarter: 2022Q4

REPORT INFORMATION
  Report Type: Spontaneous
  Country: IN (occurrence: IN)
  Receive Date: 20220630
  Receipt Date: 20221221
  Transmission Date: 20230112
  Serious: Yes (Other)
  Sender: FDA-Public Use
  Company Number: IN-PFIZER INC-2021016280

PATIENT
  Age: 65 Year
  Sex: Female

DRUGS (7)
  1. PALBOCICLIB [Suspect]
     Active Substance: PALBOCICLIB
     Indication: Breast cancer metastatic
     Dosage: 125 MG, CYCLIC (1X/DAY FOR 3 WEEKS)
     Route: 048
     Dates: start: 20200218
  2. PALBOCICLIB [Suspect]
     Active Substance: PALBOCICLIB
     Dosage: 125 MG, CYCLIC (1X/DAY FOR 3 WEEKS)
     Route: 048
     Dates: start: 20210622
  3. PALBOCICLIB [Suspect]
     Active Substance: PALBOCICLIB
     Indication: Breast cancer metastatic
     Dosage: 125 MG, CYCLIC (ONCE DAILY FOR 3 WEEKS, AFTER BREAKFAST)
     Route: 048
  4. FULVESTRANT [Concomitant]
     Active Substance: FULVESTRANT
     Dosage: 250 MG, MONTHLY
     Route: 030
  5. CALCIUM CARBONATE\CHOLECALCIFEROL [Concomitant]
     Active Substance: CALCIUM CARBONATE\CHOLECALCIFEROL
     Dosage: 1 DF, 2X/DAY (BEFORE BREAKFAST AND BEFORE DINNER)
  6. GRAFEEL [Concomitant]
     Dosage: 300 UG 1-0-0 X 2 DAYS
  7. GRAFEEL [Concomitant]
     Dosage: 300 UG 1-0-0 X 3 DAYS; AFTER BREAKFAST

REACTIONS (8)
  - Diabetes mellitus inadequate control [Unknown]
  - Joint dislocation [Unknown]
  - White blood cell count decreased [Unknown]
  - Osteoporosis [Unknown]
  - Haemoglobin decreased [Unknown]
  - Platelet count decreased [Recovered/Resolved]
  - Full blood count decreased [Unknown]
  - Off label use [Unknown]

NARRATIVE: CASE EVENT DATE: 20220407
